FAERS Safety Report 22354512 (Version 1)
Quarter: 2023Q2

REPORT INFORMATION
  Report Type: Spontaneous
  Country: US (occurrence: None)
  Receive Date: 20230522
  Receipt Date: 20230522
  Transmission Date: 20230722
  Serious: No
  Sender: FDA-Public Use
  Company Number: None

PATIENT
  Age: 72 Year
  Sex: Female

DRUGS (1)
  1. HYDROCODONE BITARTRATE AND ACETAMINOPHEN [Suspect]
     Active Substance: ACETAMINOPHEN\HYDROCODONE BITARTRATE
     Dosage: FREQUENCY : AS NEEDED;?
     Route: 048

REACTIONS (4)
  - Product substitution issue [None]
  - Therapeutic product effect incomplete [None]
  - Suspected product quality issue [None]
  - Product availability issue [None]
